FAERS Safety Report 20660729 (Version 2)
Quarter: 2022Q2

REPORT INFORMATION
  Report Type: Spontaneous
  Country: US (occurrence: US)
  Receive Date: 20220331
  Receipt Date: 20220413
  Transmission Date: 20220720
  Serious: Yes (Death, Life-Threatening, Hospitalization)
  Sender: FDA-Public Use
  Company Number: US-TEVA-2022-US-2021536

PATIENT
  Age: 7 Decade

DRUGS (6)
  1. DEXAMETHASONE [Suspect]
     Active Substance: DEXAMETHASONE
     Indication: COVID-19
     Route: 065
     Dates: start: 2021
  2. MYCOPHENOLIC ACID [Suspect]
     Active Substance: MYCOPHENOLIC ACID
     Indication: Immunosuppressant drug therapy
     Dosage: DELAYED-RELEASE
     Route: 065
     Dates: end: 2021
  3. PREDNISONE [Suspect]
     Active Substance: PREDNISONE
     Indication: Immunosuppressant drug therapy
     Dosage: STABLE DOSES
     Route: 065
     Dates: end: 2021
  4. REMDESIVIR [Suspect]
     Active Substance: REMDESIVIR
     Indication: COVID-19
     Route: 065
     Dates: start: 2021
  5. TOCILIZUMAB [Suspect]
     Active Substance: TOCILIZUMAB
     Indication: COVID-19
     Route: 065
     Dates: start: 2021
  6. TACROLIMUS [Suspect]
     Active Substance: TACROLIMUS
     Indication: Immunosuppressant drug therapy
     Route: 065

REACTIONS (16)
  - COVID-19 [Fatal]
  - Clostridial infection [Fatal]
  - Pseudomonas infection [Fatal]
  - Candida infection [Fatal]
  - Humoral immune defect [Fatal]
  - Cytomegalovirus infection [Fatal]
  - Cardiac arrest [Fatal]
  - Pneumonia pseudomonal [Fatal]
  - Vaccination failure [Fatal]
  - Drug ineffective for unapproved indication [Fatal]
  - Renal impairment [Unknown]
  - Hypoxia [Unknown]
  - Shock [Recovering/Resolving]
  - Drug ineffective [Unknown]
  - Gastrointestinal wall thickening [Unknown]
  - Off label use [Unknown]

NARRATIVE: CASE EVENT DATE: 20210101
